FAERS Safety Report 13834071 (Version 1)
Quarter: 2017Q3

REPORT INFORMATION
  Report Type: Spontaneous
  Country: GB (occurrence: GB)
  Receive Date: 20170804
  Receipt Date: 20170804
  Transmission Date: 20171127
  Serious: Yes (Other)
  Sender: FDA-Public Use
  Company Number: GB-LINDE GAS NORTH AMERICA LLC, LINDE GAS PUERTO RICO INC.-GB-LHC-2017165

PATIENT
  Age: 68 Year
  Sex: Male

DRUGS (1)
  1. COMPRESSED MEDICAL OXYGEN [Suspect]
     Active Substance: OXYGEN
     Indication: CARDIO-RESPIRATORY ARREST

REACTIONS (2)
  - Device malfunction [Unknown]
  - Accidental underdose [Unknown]
